FAERS Safety Report 23292398 (Version 1)
Quarter: 2023Q4

REPORT INFORMATION
  Report Type: Spontaneous
  Country: None (occurrence: US)
  Receive Date: 20231213
  Receipt Date: 20231213
  Transmission Date: 20240110
  Serious: No
  Sender: FDA-Public Use
  Company Number: US-Harrow Eye-2149273

PATIENT
  Sex: Male

DRUGS (4)
  1. MOXIFLOXACIN [Suspect]
     Active Substance: MOXIFLOXACIN
     Indication: Product used for unknown indication
  2. RIFAMPIN [Suspect]
     Active Substance: RIFAMPIN
  3. CLOFAZIMINE [Suspect]
     Active Substance: CLOFAZIMINE
  4. RIFABUTIN [Suspect]
     Active Substance: RIFABUTIN

REACTIONS (2)
  - Drug resistance [Unknown]
  - Drug hypersensitivity [Unknown]
